FAERS Safety Report 22394681 (Version 1)
Quarter: 2023Q2

REPORT INFORMATION
  Report Type: Spontaneous
  Country: US (occurrence: US)
  Receive Date: 20230601
  Receipt Date: 20230601
  Transmission Date: 20230722
  Serious: No
  Sender: FDA-Public Use
  Company Number: US-APIL-2315412US

PATIENT
  Sex: Male

DRUGS (1)
  1. LASTACAFT [Suspect]
     Active Substance: ALCAFTADINE
     Indication: Hypersensitivity
     Dosage: 2 GTT

REACTIONS (4)
  - Eye inflammation [Unknown]
  - Conjunctival oedema [Unknown]
  - Ocular hyperaemia [Unknown]
  - Dermatitis allergic [Unknown]
